FAERS Safety Report 9383724 (Version 1)
Quarter: 2013Q3

REPORT INFORMATION
  Report Type: Spontaneous
  Country: US (occurrence: US)
  Receive Date: 20130704
  Receipt Date: 20130704
  Transmission Date: 20140515
  Serious: Yes (Other)
  Sender: FDA-Public Use
  Company Number: US-ASTRAZENECA-2013SE49079

PATIENT
  Age: 77 Year
  Sex: Female
  Weight: 88.5 kg

DRUGS (7)
  1. SYMBICORT [Suspect]
     Indication: CHRONIC OBSTRUCTIVE PULMONARY DISEASE
     Dosage: 160/4.5 MCG 2 PUFFS, BID
     Route: 055
     Dates: start: 2009
  2. PAXIL [Concomitant]
     Indication: PANIC ATTACK
     Route: 048
     Dates: start: 1998
  3. SPIRIVA [Concomitant]
     Indication: CHRONIC OBSTRUCTIVE PULMONARY DISEASE
     Route: 055
     Dates: start: 2009
  4. LIPITOR [Concomitant]
     Indication: BLOOD CHOLESTEROL INCREASED
     Route: 048
     Dates: start: 2004
  5. MONTELUKAST [Concomitant]
     Route: 048
     Dates: start: 2009
  6. LEVOTHYROXINE [Concomitant]
     Indication: THYROID DISORDER
     Route: 048
  7. ALLOPURINOL [Concomitant]
     Indication: GOUT
     Route: 048
     Dates: start: 2012

REACTIONS (12)
  - Malignant melanoma [Unknown]
  - Streptobacillus infection [Unknown]
  - Cataract [Unknown]
  - Lung infection [Unknown]
  - Hypokinesia [Unknown]
  - Weight decreased [Unknown]
  - Gout [Unknown]
  - Cholelithiasis [Unknown]
  - Chondrocalcinosis pyrophosphate [Unknown]
  - Weight increased [Unknown]
  - Intraocular pressure increased [Unknown]
  - Depressed mood [Unknown]
